FAERS Safety Report 4796839-3 (Version None)
Quarter: 2005Q4

REPORT INFORMATION
  Report Type: 
  Country: None (occurrence: None)
  Receive Date: 20051013
  Receipt Date: 20051011
  Transmission Date: 20060501
  Serious: Yes (Hospitalization)
  Sender: FDA-Public Use
  Company Number: NO-SANOFI-SYNTHELABO-F01200502102

PATIENT
  Sex: Male

DRUGS (3)
  1. OXALIPLATIN [Suspect]
     Indication: COLON CANCER
     Dosage: 160MG 1 X PER 2 WEEK
     Dates: start: 20050913, end: 20050913
  2. FLUOROURACIL [Suspect]
     Dosage: 770 MG BOLUS AND 1150 MG INFUSION 2 X PER 2 WEEK
     Route: 042
     Dates: start: 20050913, end: 20050914
  3. LEUCOVORIN [Suspect]
     Dosage: 348 MG 2 X PER 2 WEEK
     Route: 042
     Dates: start: 20050913, end: 20050914

REACTIONS (6)
  - CHILLS [None]
  - FEELING COLD [None]
  - FLUSHING [None]
  - HYPOAESTHESIA [None]
  - LOSS OF CONSCIOUSNESS [None]
  - SYNCOPE [None]
